FAERS Safety Report 9906731 (Version 3)
Quarter: 2014Q1

REPORT INFORMATION
  Report Type: Spontaneous
  Country: US (occurrence: US)
  Receive Date: 20140218
  Receipt Date: 20140325
  Transmission Date: 20141002
  Serious: Yes (Other)
  Sender: FDA-Public Use
  Company Number: US-PFIZER INC-2014043109

PATIENT
  Sex: Male

DRUGS (2)
  1. PROCARDIA XL [Suspect]
     Dosage: 60 MG, UNK
  2. LIPITOR [Suspect]
     Dosage: UNK

REACTIONS (3)
  - Fall [Unknown]
  - Lower limb fracture [Unknown]
  - Nasopharyngitis [Unknown]
